FAERS Safety Report 7559714-7 (Version None)
Quarter: 2011Q2

REPORT INFORMATION
  Report Type: 
  Country: None (occurrence: None)
  Receive Date: 20110621
  Receipt Date: 20110516
  Transmission Date: 20111010
  Serious: Yes (Hospitalization)
  Sender: FDA-Public Use
  Company Number: GB-ROCHE-775814

PATIENT

DRUGS (6)
  1. MORPHINE [Concomitant]
  2. BEVACIZUMAB [Suspect]
     Dosage: (DOSING REGIMEN NOT PROVIDED) DELAYED BY ONE WEEK.
     Route: 042
     Dates: start: 20101215
  3. PREDNISONE [Concomitant]
  4. OXALIPLATIN [Suspect]
     Dosage: (DOSING REGIMEN NOT PROVIDED) DELAYED BY ONE WEEK.
     Route: 042
     Dates: start: 20101215
  5. FLUOROURACIL [Suspect]
     Dosage: (DOSING REGIMEN NOT PROVIDED) DELAYED BY ONE WEEK.
     Route: 042
     Dates: start: 20101215
  6. ONDANSETRON [Concomitant]

REACTIONS (4)
  - DIARRHOEA [None]
  - MALAISE [None]
  - NAUSEA [None]
  - HYPOPHAGIA [None]
